FAERS Safety Report 6872104-5 (Version None)
Quarter: 2010Q3

REPORT INFORMATION
  Report Type: 
  Country: None (occurrence: None)
  Receive Date: 20100723
  Receipt Date: 20100701
  Transmission Date: 20110219
  Serious: Yes (Hospitalization, Other)
  Sender: FDA-Public Use
  Company Number: JP-PFIZER INC-2010063997

PATIENT
  Age: 68 Year
  Sex: Male
  Weight: 68 kg

DRUGS (17)
  1. LIPITOR [Suspect]
     Indication: LIPID METABOLISM DISORDER
     Dosage: 10 MG, 1X/DAY
     Route: 048
     Dates: start: 20081201, end: 20100507
  2. LIPITOR [Suspect]
     Indication: CHRONIC OBSTRUCTIVE PULMONARY DISEASE
  3. LIPITOR [Suspect]
     Indication: MYOCARDIAL INFARCTION
  4. ALDACTONE [Suspect]
     Dosage: 25 MG, 1X/DAY
     Route: 048
     Dates: start: 20081201, end: 20100507
  5. PLAVIX [Suspect]
     Dosage: UNK
     Route: 048
  6. BUFFERIN [Suspect]
     Indication: MYOCARDIAL INFARCTION
     Dosage: 81 MG, 1X/DAY
     Dates: start: 20081201, end: 20100507
  7. EPADEL [Suspect]
     Indication: LIPID METABOLISM DISORDER
     Dosage: 600 MG, 1X/DAY
     Route: 048
     Dates: start: 20081201, end: 20100507
  8. EPADEL [Suspect]
     Indication: CHRONIC OBSTRUCTIVE PULMONARY DISEASE
  9. EPADEL [Suspect]
     Indication: MYOCARDIAL INFARCTION
  10. ECARD HD [Suspect]
     Indication: MYOCARDIAL INFARCTION
     Dosage: 1 DF, 1X/DAY
     Route: 048
     Dates: start: 20100426, end: 20100507
  11. ECARD HD [Suspect]
     Indication: HYPERTENSION
  12. TAKEPRON [Suspect]
     Indication: MYOCARDIAL INFARCTION
     Dosage: 15 MG, 1X/DAY
     Route: 048
     Dates: start: 20081201, end: 20100507
  13. LASIX [Suspect]
     Indication: MYOCARDIAL INFARCTION
     Dosage: 40 MG, 1X/DAY
     Route: 048
     Dates: start: 20091019, end: 20100507
  14. ARTIST [Suspect]
     Indication: MYOCARDIAL INFARCTION
     Dosage: 5 MG, 1X/DAY
     Route: 048
     Dates: start: 20081201
  15. MICARDIS [Suspect]
     Indication: HYPERTENSION
     Dosage: 40 MG, 1X/DAY
     Route: 048
     Dates: start: 20081201, end: 20100426
  16. MICARDIS [Suspect]
     Indication: MYOCARDIAL INFARCTION
  17. FRANDOL [Concomitant]
     Indication: MYOCARDIAL INFARCTION
     Dosage: 40 MG, 1X/DAY
     Dates: start: 20081201, end: 20100507

REACTIONS (5)
  - ASTHENIA [None]
  - BACTERIAL INFECTION [None]
  - BRONCHIOLITIS [None]
  - HEPATIC FUNCTION ABNORMAL [None]
  - PNEUMONIA [None]
